FAERS Safety Report 7190627-9 (Version None)
Quarter: 2010Q4

REPORT INFORMATION
  Report Type: 
  Country: None (occurrence: None)
  Receive Date: 20101223
  Receipt Date: 20101213
  Transmission Date: 20110411
  Serious: Yes (Other)
  Sender: FDA-Public Use
  Company Number: AU-JNJFOC-20101207142

PATIENT
  Sex: Female

DRUGS (9)
  1. TRAMAL [Suspect]
     Indication: PRODUCT USED FOR UNKNOWN INDICATION
     Route: 065
  2. MOBIC [Suspect]
     Indication: PRODUCT USED FOR UNKNOWN INDICATION
     Route: 065
     Dates: start: 20101022, end: 20101114
  3. MOBIC [Suspect]
     Route: 065
     Dates: start: 20101022, end: 20101114
  4. PANADEINE FORTE [Suspect]
     Indication: PRODUCT USED FOR UNKNOWN INDICATION
     Route: 065
  5. CALCIUM [Concomitant]
  6. LAMICTAL [Concomitant]
  7. NEXIUM [Concomitant]
  8. PREDNISOLONE [Concomitant]
  9. VITAMIN D [Concomitant]

REACTIONS (6)
  - AGITATION [None]
  - CRYING [None]
  - DELUSION [None]
  - DEPRESSION [None]
  - EMOTIONAL DISTRESS [None]
  - SUICIDAL IDEATION [None]
